FAERS Safety Report 6874608-8 (Version None)
Quarter: 2010Q3

REPORT INFORMATION
  Report Type: 
  Country: None (occurrence: None)
  Receive Date: 20100722
  Receipt Date: 20100715
  Transmission Date: 20110219
  Serious: Yes (Other)
  Sender: FDA-Public Use
  Company Number: 633826

PATIENT
  Age: 64 Year
  Sex: Male
  Weight: 8.3 kg

DRUGS (17)
  1. PRECEDEX [Suspect]
     Indication: ENDOTRACHEAL INTUBATION
     Dosage: SEE IMAGE
     Route: 042
     Dates: start: 20080808, end: 20080808
  2. PRECEDEX [Suspect]
     Indication: SEDATION
     Dosage: SEE IMAGE
     Route: 042
     Dates: start: 20080808, end: 20080808
  3. PRECEDEX [Suspect]
     Indication: ENDOTRACHEAL INTUBATION
     Dosage: SEE IMAGE
     Route: 042
     Dates: start: 20080808, end: 20080808
  4. PRECEDEX [Suspect]
     Indication: SEDATION
     Dosage: SEE IMAGE
     Route: 042
     Dates: start: 20080808, end: 20080808
  5. PRECEDEX [Suspect]
     Indication: ENDOTRACHEAL INTUBATION
     Dosage: SEE IMAGE
     Route: 042
     Dates: start: 20080808, end: 20080808
  6. PRECEDEX [Suspect]
     Indication: SEDATION
     Dosage: SEE IMAGE
     Route: 042
     Dates: start: 20080808, end: 20080808
  7. PRECEDEX [Suspect]
     Indication: ENDOTRACHEAL INTUBATION
     Dosage: SEE IMAGE
     Route: 042
     Dates: start: 20080808, end: 20080808
  8. PRECEDEX [Suspect]
     Indication: SEDATION
     Dosage: SEE IMAGE
     Route: 042
     Dates: start: 20080808, end: 20080808
  9. FENTANYL CITRATE [Concomitant]
  10. PROPOFOL INJECTION EMULSION (PROPOFOL) [Concomitant]
  11. NALBUPHINE HCL INJ, USP (NALBUPHINE HYDROCHLORIDE) [Concomitant]
  12. MORPHINE SULFATE [Concomitant]
  13. MIDAZOLAM HCL [Concomitant]
  14. ROCURONIUM BROMIDE [Concomitant]
  15. (SULBACTAM) [Concomitant]
  16. HYDROXYZINE [Concomitant]
  17. DESFLURANE [Concomitant]

REACTIONS (1)
  - HYPOTENSION [None]
